FAERS Safety Report 17467543 (Version 1)
Quarter: 2020Q1

REPORT INFORMATION
  Report Type: Spontaneous
  Country: US (occurrence: US)
  Receive Date: 20200227
  Receipt Date: 20200227
  Transmission Date: 20200409
  Serious: Yes (Other)
  Sender: FDA-Public Use
  Company Number: US-SA-2020SA046396

PATIENT
  Age: 40 Year
  Sex: Male

DRUGS (1)
  1. ADMELOG [Suspect]
     Active Substance: INSULIN LISPRO
     Indication: TYPE 1 DIABETES MELLITUS
     Dosage: 14 IU, QD (7 UNITS IN THE MORNING AND 3 UNITS ON A SLIDING SCALE THROUGHOUT THE DAY)
     Route: 065

REACTIONS (3)
  - Diabetic retinopathy [Unknown]
  - Blood glucose increased [Recovered/Resolved]
  - Blindness [Unknown]
